FAERS Safety Report 8490684 (Version 3)
Quarter: 2012Q4

REPORT INFORMATION
  Report Type: 
  Country: JP (occurrence: JP)
  Receive Date: 20120403
  Receipt Date: 20120907
  Transmission Date: 20130627
  Serious: Yes (Hospitalization, Other)
  Sender: FDA-Public Use
  Company Number: PHHY2012JP027370

PATIENT
  Age: 51 Year
  Sex: Female
  Weight: 47 kg

DRUGS (5)
  1. ZOMETA [Suspect]
     Dosage: 4 mg per administration, UNK
     Route: 041
     Dates: start: 200904, end: 201110
  2. FEMARA [Suspect]
     Indication: BREAST CANCER METASTATIC
     Dosage: 2.5 mg, daily
     Route: 048
     Dates: start: 20090414
  3. FEMARA [Suspect]
     Dosage: 2.5 mg, daily
     Route: 048
     Dates: start: 20111229
  4. HERCEPTIN [Concomitant]
     Dosage: UNK UKN, UNK
     Dates: start: 20081020, end: 20101109
  5. ANASTROZOLE [Concomitant]
     Dosage: UNK UKN, UNK
     Route: 048
     Dates: start: 20081201

REACTIONS (28)
  - Sepsis [Recovering/Resolving]
  - Pyrexia [Recovered/Resolved]
  - Myalgia [Not Recovered/Not Resolved]
  - Abdominal pain [Unknown]
  - Erythema [Unknown]
  - Neck pain [Unknown]
  - Musculoskeletal pain [Unknown]
  - Endophthalmitis [Recovering/Resolving]
  - Oedema [Unknown]
  - Swelling [Unknown]
  - Blood pressure decreased [Unknown]
  - Cardiothoracic ratio increased [Unknown]
  - Mitral valve incompetence [Unknown]
  - Tricuspid valve incompetence [Unknown]
  - Streptococcal infection [Unknown]
  - Inflammation [Recovering/Resolving]
  - Jaundice [Unknown]
  - Endocarditis [Recovering/Resolving]
  - Urinary retention [Recovering/Resolving]
  - Blood pressure fluctuation [Unknown]
  - Dysuria [Recovering/Resolving]
  - Shock [Unknown]
  - Tenderness [Unknown]
  - C-reactive protein increased [Not Recovered/Not Resolved]
  - Immune system disorder [Unknown]
  - Malaise [Unknown]
  - Vision blurred [Unknown]
  - Visual acuity reduced [Unknown]
